FAERS Safety Report 7197382-7 (Version None)
Quarter: 2010Q4

REPORT INFORMATION
  Report Type: 
  Country: None (occurrence: None)
  Receive Date: 20101213
  Receipt Date: 20101202
  Transmission Date: 20110411
  Serious: Yes (Congenital Anomaly)
  Sender: FDA-Public Use
  Company Number: 2010MA005007

PATIENT

DRUGS (1)
  1. SERTRALINE HYDROCHLORIDE [Suspect]
     Indication: DRUG EXPOSURE DURING PREGNANCY
     Dosage: 100 MG; TRPL
     Route: 064
     Dates: start: 20101027

REACTIONS (3)
  - ABORTION INDUCED [None]
  - ANENCEPHALY [None]
  - MATERNAL DRUGS AFFECTING FOETUS [None]
